FAERS Safety Report 7531684-7 (Version None)
Quarter: 2011Q2

REPORT INFORMATION
  Report Type: 
  Country: None (occurrence: None)
  Receive Date: 20110601
  Receipt Date: 20110519
  Transmission Date: 20111010
  Serious: Yes (Hospitalization)
  Sender: FDA-Public Use
  Company Number: 1000021195

PATIENT
  Age: 55 Year
  Sex: Male

DRUGS (2)
  1. XALATAN [Concomitant]
  2. ESCITALOPRAM [Suspect]
     Dosage: 10 MG MG, 1 IN 1 D), ORAL
     Route: 048
     Dates: start: 20091209

REACTIONS (15)
  - VOMITING [None]
  - SLEEP DISORDER [None]
  - SYNCOPE [None]
  - BALANCE DISORDER [None]
  - FALL [None]
  - GAIT DISTURBANCE [None]
  - DYSSTASIA [None]
  - NECK PAIN [None]
  - FEELING COLD [None]
  - RESTLESS LEGS SYNDROME [None]
  - VISUAL IMPAIRMENT [None]
  - MALAISE [None]
  - ILL-DEFINED DISORDER [None]
  - HEADACHE [None]
  - HEARING IMPAIRED [None]
